FAERS Safety Report 7542058-7 (Version None)
Quarter: 2011Q2

REPORT INFORMATION
  Report Type: 
  Country: None (occurrence: None)
  Receive Date: 20110613
  Receipt Date: 20110607
  Transmission Date: 20111010
  Serious: Yes (Life-Threatening, Hospitalization)
  Sender: FDA-Public Use
  Company Number: JP-ASTELLAS-2011JP003619

PATIENT
  Age: 65 Year
  Sex: Female

DRUGS (14)
  1. PROGRAF [Suspect]
     Dosage: 1 MG, UNKNOWN/D
     Route: 048
     Dates: end: 20110513
  2. ADALAT [Concomitant]
     Dosage: 60 MG, UNKNOWN/D
     Route: 048
  3. TALION [Concomitant]
     Dosage: 20 MG, UNKNOWN/D
     Route: 048
  4. FERROUS CITRATE [Concomitant]
     Dosage: 100 MG, UNKNOWN/D
     Route: 048
  5. MEDROL [Concomitant]
     Dosage: 2 MG, UNKNOWN/D
     Route: 048
     Dates: start: 20100524
  6. PROGRAF [Suspect]
     Dosage: 0.5 MG, UNKNOWN/D
     Route: 048
     Dates: start: 20110513, end: 20110520
  7. MICARDIS [Concomitant]
     Dosage: 80 MG, UNKNOWN/D
     Route: 048
  8. MEDROL [Concomitant]
     Dosage: 4 MG, UNKNOWN/D
     Route: 048
     Dates: end: 20110524
  9. ALFAROL [Concomitant]
     Dosage: 0.25 MG, UNKNOWN/D
     Route: 048
  10. PRAVASTATIN SODIUM [Concomitant]
     Dosage: 5 MG, UNKNOWN/D
     Route: 048
  11. CARVEDILOL [Suspect]
     Dosage: 5 MG, UNKNOWN/D
     Route: 048
     Dates: end: 20110513
  12. CALCIUM CARBONATE [Concomitant]
     Dosage: 1500 MG, UNKNOWN/D
     Route: 048
  13. LONGES [Concomitant]
     Dosage: 20 MG, UNKNOWN/D
     Route: 048
  14. OMEPRAZOLE [Concomitant]
     Dosage: 10 MG, UNKNOWN/D
     Route: 048

REACTIONS (3)
  - PULMONARY OEDEMA [None]
  - MYOCARDITIS [None]
  - CARDIAC FAILURE [None]
